FAERS Safety Report 16538495 (Version 2)
Quarter: 2019Q3

REPORT INFORMATION
  Report Type: Spontaneous
  Country: JP (occurrence: JP)
  Receive Date: 20190708
  Receipt Date: 20190731
  Transmission Date: 20191004
  Serious: Yes (Death, Other)
  Sender: FDA-Public Use
  Company Number: JP-009507513-1906JPN003187J

PATIENT
  Age: 78 Year
  Sex: Male

DRUGS (5)
  1. KEYTRUDA [Suspect]
     Active Substance: PEMBROLIZUMAB
     Indication: TRANSITIONAL CELL CARCINOMA
     Dosage: 200 MILLIGRAM, Q3W
     Route: 041
     Dates: start: 20181122, end: 201905
  2. URSO [Concomitant]
     Active Substance: URSODIOL
     Dosage: UNK
     Route: 065
  3. HYDANTOL [Concomitant]
     Active Substance: PHENYTOIN SODIUM
     Dosage: UNK
     Route: 065
  4. CP [Concomitant]
     Dosage: UNK
     Route: 065
  5. POLYFUL [Concomitant]
     Active Substance: CALCIUM POLYCARBOPHIL
     Dosage: UNK
     Route: 065

REACTIONS (3)
  - Myelodysplastic syndrome [Unknown]
  - Haemolytic anaemia [Fatal]
  - Lymphoma [Unknown]

NARRATIVE: CASE EVENT DATE: 201906
